FAERS Safety Report 5796439-2 (Version None)
Quarter: 2008Q3

REPORT INFORMATION
  Report Type: 
  Country: None (occurrence: None)
  Receive Date: 20080701
  Receipt Date: 20080619
  Transmission Date: 20090109
  Serious: Yes (Other)
  Sender: FDA-Public Use
  Company Number: PHNU2008DE00580

PATIENT
  Sex: Female

DRUGS (1)
  1. PROVAS 160 MAXX [Suspect]
     Indication: HYPERTENSION
     Dosage: UNK, UNK
     Route: 048
     Dates: start: 20071001

REACTIONS (8)
  - ARTHRALGIA [None]
  - DENTAL OPERATION [None]
  - MOVEMENT DISORDER [None]
  - OSTEOARTHRITIS [None]
  - PURULENCE [None]
  - TENDON OPERATION [None]
  - TENDONITIS [None]
  - TOOTHACHE [None]
